FAERS Safety Report 4866772-7 (Version None)
Quarter: 2005Q4

REPORT INFORMATION
  Report Type: 
  Country: None (occurrence: None)
  Receive Date: 20051221
  Receipt Date: 20051208
  Transmission Date: 20060501
  Serious: Yes (Death)
  Sender: FDA-Public Use
  Company Number: 220184

PATIENT
  Age: 80 Year
  Sex: Female

DRUGS (1)
  1. ACTIVACIN                  (ALTEPLASE) [Suspect]
     Indication: CEREBRAL INFARCTION
     Dosage: SINGLE, INTRAVENOUS
     Route: 042
     Dates: start: 20051127, end: 20051127

REACTIONS (1)
  - AORTIC ANEURYSM RUPTURE [None]
